FAERS Safety Report 21848034 (Version 1)
Quarter: 2023Q1

REPORT INFORMATION
  Report Type: Spontaneous
  Country: US (occurrence: None)
  Receive Date: 20230110
  Receipt Date: 20230110
  Transmission Date: 20230417
  Serious: No
  Sender: FDA-Public Use
  Company Number: None

PATIENT
  Age: 64 Year
  Sex: Male
  Weight: 86.18 kg

DRUGS (15)
  1. WELIREG [Suspect]
     Active Substance: BELZUTIFAN
     Indication: Renal cancer
     Dosage: FREQUENCY : DAILY;?
     Route: 048
  2. ATIVAN [Concomitant]
  3. CLONIDINE [Concomitant]
  4. HYDRALAZINE [Concomitant]
  5. JANUVIA [Concomitant]
  6. LORAZEPAM [Concomitant]
  7. METFORMIN [Concomitant]
     Active Substance: METFORMIN HYDROCHLORIDE
  8. PROCHLORPERAZINE [Concomitant]
  9. CALCIUM-VITAMIN D [Concomitant]
  10. FISH OIL [Concomitant]
  11. TELMISARTAN-HCTZ [Concomitant]
  12. ASPIRIN [Concomitant]
  13. TYLENOL [Concomitant]
  14. VITAMIN B6 [Concomitant]
     Active Substance: PYRIDOXINE HYDROCHLORIDE
  15. XGEVA [Concomitant]

REACTIONS (1)
  - Disease progression [None]
